FAERS Safety Report 9482071 (Version 1)
Quarter: 2013Q3

REPORT INFORMATION
  Report Type: Report from Study
  Country: CN (occurrence: CN)
  Receive Date: 20130828
  Receipt Date: 20130828
  Transmission Date: 20140515
  Serious: Yes (Other)
  Sender: FDA-Public Use
  Company Number: CN-ROCHE-1266071

PATIENT
  Sex: Male

DRUGS (3)
  1. CELLCEPT [Suspect]
     Indication: RENAL TRANSPLANT
     Route: 048
     Dates: start: 20061227
  2. MYCOPHENOLATE MOFETIL (NON-ROCHE) [Concomitant]
     Route: 048
  3. PROGRAF [Concomitant]
     Indication: RENAL TRANSPLANT
     Route: 048
     Dates: start: 20061227

REACTIONS (2)
  - Renal atrophy [Not Recovered/Not Resolved]
  - Renal neoplasm [Not Recovered/Not Resolved]
